FAERS Safety Report 18396046 (Version 2)
Quarter: 2020Q4

REPORT INFORMATION
  Report Type: Other
  Country: US (occurrence: US)
  Receive Date: 20201018
  Receipt Date: 20201103
  Transmission Date: 20210114
  Serious: Yes (Hospitalization)
  Sender: FDA-Public Use
  Company Number: US-INTERCEPT-PM2020002065

PATIENT
  Age: 68 Year
  Sex: Female
  Weight: 43.08 kg

DRUGS (13)
  1. OCALIVA [Suspect]
     Active Substance: OBETICHOLIC ACID
     Indication: PRIMARY BILIARY CHOLANGITIS
     Dosage: 5 MG, QD
     Route: 048
     Dates: start: 20200212, end: 2020
  2. ZYPREXA [Suspect]
     Active Substance: OLANZAPINE
     Dosage: 5 MG, BID
     Route: 048
     Dates: start: 2020, end: 20201002
  3. ACTIGALL [Concomitant]
     Active Substance: URSODIOL
     Dosage: 500 MG, BID
     Route: 048
     Dates: start: 201508, end: 20200924
  4. ALBUTEROL HFA [Concomitant]
     Active Substance: ALBUTEROL SULFATE
     Dosage: 2 PUFFS Q4H IF NEEDED
     Route: 045
     Dates: start: 20190711, end: 20200710
  5. ZOFRAN [Concomitant]
     Active Substance: ONDANSETRON HYDROCHLORIDE
     Dosage: 4 MG, Q8H, PRN
     Route: 048
  6. MOTRIN [Concomitant]
     Active Substance: IBUPROFEN
     Dosage: 400 MG, Q6H, PRN
     Route: 048
  7. ACTIGALL [Concomitant]
     Active Substance: URSODIOL
     Dosage: 300 MG, BID
     Route: 048
     Dates: end: 20201002
  8. NARCAN [Concomitant]
     Active Substance: NALOXONE HYDROCHLORIDE
     Dosage: 0.2 MG, Q5 MIN PRN
     Route: 042
  9. ZOFRAN [Concomitant]
     Active Substance: ONDANSETRON HYDROCHLORIDE
     Dosage: 4 MG, Q8H PRN
     Route: 042
  10. ZYPREXA [Suspect]
     Active Substance: OLANZAPINE
     Indication: SCHIZOPHRENIA
     Dosage: 5 MG, TID
     Route: 048
     Dates: start: 20190130, end: 2020
  11. OCALIVA [Suspect]
     Active Substance: OBETICHOLIC ACID
     Dosage: 10 MG, QD
     Route: 048
     Dates: start: 20200701
  12. ULTRAM [Concomitant]
     Active Substance: TRAMADOL HYDROCHLORIDE
     Dosage: 50 MG, Q6H, PRN
     Route: 048
  13. CIRCADIN [Concomitant]
     Active Substance: MELATONIN
     Dosage: 3 MG, QHS, PRN
     Route: 048

REACTIONS (32)
  - Weight decreased [Not Recovered/Not Resolved]
  - White blood cells urine positive [Unknown]
  - Aspartate aminotransferase abnormal [Unknown]
  - Hypophagia [Unknown]
  - Somnolence [Unknown]
  - Fatigue [Unknown]
  - Hyponatraemia [Unknown]
  - Blood potassium abnormal [Recovered/Resolved]
  - Adjusted calcium increased [Unknown]
  - Lymphocyte count abnormal [Recovered/Resolved]
  - Red blood cells urine positive [Unknown]
  - Urine osmolarity decreased [Unknown]
  - Malaise [Unknown]
  - Asthenia [Recovered/Resolved]
  - Dry mouth [Unknown]
  - Blood alkaline phosphatase abnormal [Not Recovered/Not Resolved]
  - Inappropriate antidiuretic hormone secretion [Unknown]
  - Blood chloride abnormal [Unknown]
  - Blood albumin abnormal [Recovered/Resolved]
  - Neutrophil count abnormal [Recovered/Resolved]
  - Blood glucose abnormal [Unknown]
  - Skin warm [Unknown]
  - Dry skin [Unknown]
  - Thought blocking [Unknown]
  - Blood uric acid abnormal [Unknown]
  - Oral pain [Unknown]
  - Blood creatinine abnormal [Unknown]
  - Gait disturbance [Unknown]
  - Rales [Recovered/Resolved]
  - Syncope [Recovered/Resolved]
  - Blood urea abnormal [Unknown]
  - Protein total abnormal [Unknown]

NARRATIVE: CASE EVENT DATE: 2020
